FAERS Safety Report 10730983 (Version 1)
Quarter: 2015Q1

REPORT INFORMATION
  Report Type: Spontaneous
  Country: US (occurrence: None)
  Receive Date: 20150120
  Receipt Date: 20150120
  Transmission Date: 20150721
  Serious: Yes (Disabling)
  Sender: FDA-Public Use
  Company Number: None

PATIENT
  Age: 56 Year
  Sex: Female
  Weight: 115.67 kg

DRUGS (2)
  1. LEVOFLOXACIN ? NO INFO ON MY DISCHARGE PAPERS [Suspect]
     Active Substance: LEVOFLOXACIN
     Indication: CELLULITIS
     Dosage: 3 OR 4 RIMWA?ONCE DAILY?INTO A VEIN
     Dates: start: 20141123, end: 20141126
  2. LEVOFLOXACIN ? NO INFO ON MY DISCHARGE PAPERS [Suspect]
     Active Substance: LEVOFLOXACIN
     Indication: INFECTION
     Dosage: 3 OR 4 RIMWA?ONCE DAILY?INTO A VEIN
     Dates: start: 20141123, end: 20141126

REACTIONS (8)
  - Paraesthesia [None]
  - Musculoskeletal pain [None]
  - Tendon pain [None]
  - Dysstasia [None]
  - Musculoskeletal disorder [None]
  - Gait disturbance [None]
  - Activities of daily living impaired [None]
  - Feeling abnormal [None]

NARRATIVE: CASE EVENT DATE: 20141123
